FAERS Safety Report 10152216 (Version 1)
Quarter: 2014Q2

REPORT INFORMATION
  Report Type: Spontaneous
  Country: US (occurrence: US)
  Receive Date: 20140505
  Receipt Date: 20140505
  Transmission Date: 20141212
  Serious: Yes (Hospitalization)
  Sender: FDA-Public Use
  Company Number: US-MYLANLABS-2014S1009700

PATIENT
  Age: 59 Year
  Sex: Male

DRUGS (8)
  1. AMLODIPINE [Suspect]
     Indication: INTENTIONAL OVERDOSE
     Dosage: 30 X 10MG TABLETS (300MG)
     Route: 048
  2. AMLODIPINE [Suspect]
     Indication: OFF LABEL USE
     Dosage: 30 X 10MG TABLETS (300MG)
     Route: 048
  3. METFORMIN [Suspect]
     Indication: INTENTIONAL OVERDOSE
     Dosage: 60 X 500MG TABLETS (30G)
     Route: 048
  4. METFORMIN [Suspect]
     Indication: OFF LABEL USE
     Dosage: 60 X 500MG TABLETS (30G)
     Route: 048
  5. LISINOPRIL [Suspect]
     Indication: INTENTIONAL OVERDOSE
     Dosage: 30 X 10MG TABLETS (300MG)
     Route: 048
  6. LISINOPRIL [Suspect]
     Indication: OFF LABEL USE
     Dosage: 30 X 10MG TABLETS (300MG)
     Route: 048
  7. SIMVASTATIN [Suspect]
     Indication: INTENTIONAL OVERDOSE
     Dosage: UNKNOWN QUANTITY OF 40MG TABLETS
     Route: 048
  8. SIMVASTATIN [Suspect]
     Indication: OFF LABEL USE
     Dosage: UNKNOWN QUANTITY OF 40MG TABLETS
     Route: 048

REACTIONS (4)
  - Intentional overdose [Recovered/Resolved]
  - Cardiogenic shock [Recovered/Resolved]
  - Lactic acidosis [Recovered/Resolved]
  - Renal failure acute [Recovered/Resolved]
